FAERS Safety Report 18799357 (Version 1)
Quarter: 2021Q1

REPORT INFORMATION
  Report Type: Spontaneous
  Country: BR (occurrence: BR)
  Receive Date: 20210128
  Receipt Date: 20210128
  Transmission Date: 20210419
  Serious: Yes (Hospitalization)
  Sender: FDA-Public Use
  Company Number: BR-ROCHE-2752549

PATIENT
  Sex: Female

DRUGS (4)
  1. AAS [Concomitant]
     Active Substance: ASPIRIN
     Dosage: DAILY USE
  2. ENALAPRIL [Concomitant]
     Active Substance: ENALAPRIL
     Dosage: DAILY USE
  3. ALOGLIPTIN. [Concomitant]
     Active Substance: ALOGLIPTIN
     Dosage: DAILY USE
  4. METALYSE [Suspect]
     Active Substance: TENECTEPLASE
     Indication: ACUTE MYOCARDIAL INFARCTION
     Route: 042
     Dates: start: 20201209

REACTIONS (2)
  - Laryngeal oedema [Recovered/Resolved]
  - Swelling [Recovered/Resolved]

NARRATIVE: CASE EVENT DATE: 20201209
